FAERS Safety Report 6078247-0 (Version None)
Quarter: 2009Q1

REPORT INFORMATION
  Report Type: 
  Country: None (occurrence: None)
  Receive Date: 20090213
  Receipt Date: 20090204
  Transmission Date: 20090719
  Serious: Yes (Hospitalization)
  Sender: FDA-Public Use
  Company Number: FR-ABBOTT-09P-056-0501584-00

PATIENT
  Age: 78 Year
  Sex: Female

DRUGS (3)
  1. VERCYTE [Suspect]
     Indication: THROMBOCYTOPENIA
     Route: 048
     Dates: end: 20081231
  2. HEPARIN [Suspect]
     Indication: PULMONARY EMBOLISM
     Dosage: AT CURATIVE DOSE
     Route: 042
     Dates: start: 20081218
  3. DANAPAROID SODIUM [Concomitant]
     Indication: DRUG USE FOR UNKNOWN INDICATION
     Dates: start: 20081201

REACTIONS (3)
  - DEEP VEIN THROMBOSIS [None]
  - PULMONARY EMBOLISM [None]
  - THROMBOCYTOPENIA [None]
